FAERS Safety Report 16312849 (Version 19)
Quarter: 2022Q4

REPORT INFORMATION
  Report Type: Report from Study
  Country: DE (occurrence: DE)
  Receive Date: 20190515
  Receipt Date: 20221207
  Transmission Date: 20230113
  Serious: Yes (Hospitalization, Other)
  Sender: FDA-Public Use
  Company Number: PHHY2016DE143742

PATIENT
  Age: 64 Year
  Sex: Male
  Weight: 69 kg

DRUGS (44)
  1. VOTRIENT [Suspect]
     Active Substance: PAZOPANIB HYDROCHLORIDE
     Indication: Metastatic renal cell carcinoma
     Dosage: 800 MG, QD
     Route: 048
     Dates: start: 20160715, end: 20160928
  2. VOTRIENT [Suspect]
     Active Substance: PAZOPANIB HYDROCHLORIDE
     Dosage: 800 MG, QD
     Route: 048
     Dates: start: 20160929, end: 20161124
  3. VOTRIENT [Suspect]
     Active Substance: PAZOPANIB HYDROCHLORIDE
     Dosage: 800 MG, QD
     Route: 048
     Dates: start: 20161125, end: 20170125
  4. VOTRIENT [Suspect]
     Active Substance: PAZOPANIB HYDROCHLORIDE
     Dosage: 800 MG, QD
     Route: 048
     Dates: start: 20170126, end: 20170404
  5. VOTRIENT [Suspect]
     Active Substance: PAZOPANIB HYDROCHLORIDE
     Dosage: 800 MG, QD
     Route: 048
     Dates: start: 20170405, end: 20170712
  6. VOTRIENT [Suspect]
     Active Substance: PAZOPANIB HYDROCHLORIDE
     Dosage: 800 MG, QD
     Route: 048
     Dates: start: 20170713, end: 20171005
  7. VOTRIENT [Suspect]
     Active Substance: PAZOPANIB HYDROCHLORIDE
     Dosage: 800 MG, QD
     Route: 048
     Dates: start: 20171006, end: 20171107
  8. AFINITOR [Suspect]
     Active Substance: EVEROLIMUS
     Indication: Metastatic renal cell carcinoma
     Dosage: 10 MG, QD
     Route: 048
     Dates: start: 20180516, end: 20180807
  9. AFINITOR [Suspect]
     Active Substance: EVEROLIMUS
     Dosage: 10 MG, QD
     Route: 048
     Dates: start: 20180808, end: 20181030
  10. AFINITOR [Suspect]
     Active Substance: EVEROLIMUS
     Dosage: 10 MG, QD
     Route: 048
     Dates: start: 20181031, end: 20190122
  11. AFINITOR [Suspect]
     Active Substance: EVEROLIMUS
     Dosage: 10 MG, QD
     Route: 048
     Dates: start: 20190123, end: 20190415
  12. AFINITOR [Suspect]
     Active Substance: EVEROLIMUS
     Dosage: 5 MG, QD
     Route: 048
     Dates: start: 20190416, end: 20190416
  13. AFINITOR [Suspect]
     Active Substance: EVEROLIMUS
     Dosage: 5 MG, QD
     Route: 048
     Dates: start: 20190417, end: 20191003
  14. AFINITOR [Suspect]
     Active Substance: EVEROLIMUS
     Dosage: 5 MG, QD
     Route: 048
     Dates: start: 20190710, end: 20191001
  15. AFINITOR [Suspect]
     Active Substance: EVEROLIMUS
     Dosage: 5 MG, QD
     Route: 048
     Dates: start: 20190416, end: 20190416
  16. AFINITOR [Suspect]
     Active Substance: EVEROLIMUS
     Dosage: UNK
     Route: 065
     Dates: start: 20190507, end: 20190616
  17. AFINITOR [Suspect]
     Active Substance: EVEROLIMUS
     Dosage: 5 MG, QD
     Route: 048
     Dates: start: 20190507, end: 20190616
  18. AFINITOR [Suspect]
     Active Substance: EVEROLIMUS
     Dosage: UNK
     Route: 065
     Dates: start: 20191004, end: 20191004
  19. ZOMETA [Suspect]
     Active Substance: ZOLEDRONIC ACID
     Indication: Metastases to bone
     Dosage: 4 MG, QMO
     Route: 042
     Dates: start: 20131112, end: 20180507
  20. OPDIVO [Suspect]
     Active Substance: NIVOLUMAB
     Indication: Metastatic renal cell carcinoma
     Dosage: 3 MG/KG, UNK
     Route: 042
     Dates: start: 20171114, end: 20171127
  21. OPDIVO [Suspect]
     Active Substance: NIVOLUMAB
     Dosage: 3 MG/KG, UNK
     Route: 042
     Dates: start: 20171128, end: 20171211
  22. OPDIVO [Suspect]
     Active Substance: NIVOLUMAB
     Dosage: 3 MG/KG, UNK
     Route: 042
     Dates: start: 20171212, end: 20171226
  23. OPDIVO [Suspect]
     Active Substance: NIVOLUMAB
     Dosage: 3 MG/KG, UNK
     Route: 042
     Dates: start: 20171227, end: 20180109
  24. OPDIVO [Suspect]
     Active Substance: NIVOLUMAB
     Dosage: 3 MG/KG, UNK
     Route: 042
     Dates: start: 20180110, end: 20180123
  25. OPDIVO [Suspect]
     Active Substance: NIVOLUMAB
     Dosage: 3 MG/KG, UNK
     Route: 042
     Dates: start: 20180124, end: 20180206
  26. OPDIVO [Suspect]
     Active Substance: NIVOLUMAB
     Dosage: 3 MG/KG, UNK
     Route: 042
     Dates: start: 20180207, end: 20180220
  27. OPDIVO [Suspect]
     Active Substance: NIVOLUMAB
     Dosage: 3 MG/KG, UNK
     Route: 042
     Dates: start: 20180221, end: 20180306
  28. OPDIVO [Suspect]
     Active Substance: NIVOLUMAB
     Dosage: 3 MG/KG, UNK
     Route: 042
     Dates: start: 20180307, end: 20180319
  29. OPDIVO [Suspect]
     Active Substance: NIVOLUMAB
     Dosage: 3 MG/KG, UNK
     Route: 042
     Dates: start: 20180320, end: 20180403
  30. OPDIVO [Suspect]
     Active Substance: NIVOLUMAB
     Dosage: 3 MG/KG, UNK
     Route: 042
     Dates: start: 20180404, end: 20180417
  31. OPDIVO [Suspect]
     Active Substance: NIVOLUMAB
     Dosage: 3 MG/KG, UNK
     Route: 042
     Dates: start: 20180418, end: 20180502
  32. OPDIVO [Suspect]
     Active Substance: NIVOLUMAB
     Dosage: 3 MG/KG, UNK
     Route: 042
     Dates: start: 20180503, end: 20180515
  33. OPDIVO [Suspect]
     Active Substance: NIVOLUMAB
     Dosage: UNK
     Route: 065
     Dates: start: 20180516, end: 20180516
  34. LENVATINIB [Suspect]
     Active Substance: LENVATINIB
     Indication: Renal cell carcinoma
     Dosage: 10 MG, QD
     Route: 048
     Dates: start: 20190213
  35. LEVOTHYROXINE [Concomitant]
     Active Substance: LEVOTHYROXINE
     Indication: Hypothyroidism
     Dosage: 75 UG, QD
     Route: 048
     Dates: end: 20160929
  36. LEVOTHYROXINE [Concomitant]
     Active Substance: LEVOTHYROXINE
     Dosage: 112 UG, QD
     Route: 048
     Dates: start: 20160929
  37. LYRICA [Concomitant]
     Active Substance: PREGABALIN
     Indication: Metastases to bone
     Dosage: 100 MG, BID
     Route: 065
     Dates: start: 20150803
  38. PANTOPRAZOL BETA [Concomitant]
     Indication: Prophylaxis
     Dosage: 40 MG, BID (20-40 MG BID)
     Route: 048
     Dates: start: 201601
  39. ALLOPURINOL [Concomitant]
     Active Substance: ALLOPURINOL
     Indication: Chronic kidney disease
     Dosage: 300 MG, QD
     Route: 048
  40. ZOPICLONE [Concomitant]
     Active Substance: ZOPICLONE
     Indication: Sleep disorder
     Dosage: 7.5 MG, PRN
     Route: 048
  41. MUCOFALK [Concomitant]
     Indication: Constipation
     Dosage: 3.25 MG, PRN
     Route: 048
  42. HCT-BETA [Concomitant]
     Indication: Hypertension
     Dosage: 25 MG, QD
     Route: 048
  43. DIMETHINDENE [Concomitant]
     Active Substance: DIMETHINDENE
     Indication: Prophylaxis
     Dosage: 1 MG, PRN
     Route: 048
  44. METOPROLOL SUCCINATE [Concomitant]
     Active Substance: METOPROLOL SUCCINATE
     Indication: Arrhythmia
     Dosage: 47.5 MG, BID
     Route: 048

REACTIONS (23)
  - Blood creatinine increased [Recovering/Resolving]
  - Hypertension [Not Recovered/Not Resolved]
  - Leukopenia [Not Recovered/Not Resolved]
  - Diarrhoea [Not Recovered/Not Resolved]
  - Nausea [Recovered/Resolved]
  - Rash [Not Recovered/Not Resolved]
  - Abdominal distension [Recovering/Resolving]
  - Constipation [Not Recovered/Not Resolved]
  - Skin oedema [Unknown]
  - Skin swelling [Unknown]
  - Metastases to liver [Not Recovered/Not Resolved]
  - Hypothyroidism [Recovered/Resolved]
  - Blood urea increased [Not Recovered/Not Resolved]
  - Impaired healing [Recovered/Resolved]
  - Osteonecrosis of jaw [Not Recovered/Not Resolved]
  - Bone disorder [Unknown]
  - Soft tissue infection [Unknown]
  - Acute sinusitis [Recovered/Resolved]
  - Oral herpes [Recovering/Resolving]
  - Vomiting [Not Recovered/Not Resolved]
  - Gout [Recovering/Resolving]
  - Decreased appetite [Not Recovered/Not Resolved]
  - Palmar-plantar erythrodysaesthesia syndrome [Recovered/Resolved]

NARRATIVE: CASE EVENT DATE: 20160722
